FAERS Safety Report 12109213 (Version 8)
Quarter: 2016Q3

REPORT INFORMATION
  Report Type: Report from Study
  Country: TW (occurrence: CN)
  Receive Date: 20160224
  Receipt Date: 20160706
  Transmission Date: 20161109
  Serious: Yes (Death, Life-Threatening, Hospitalization, Other)
  Sender: FDA-Public Use
  Company Number: TW-009507513-1602TWN010656

PATIENT
  Age: 30 Year
  Sex: Female

DRUGS (4)
  1. LEVOTHYROXINE SODIUM. [Concomitant]
     Active Substance: LEVOTHYROXINE SODIUM
     Indication: PRODUCT USED FOR UNKNOWN INDICATION
     Dosage: TOTAL DAILY DOSE: 0.1 MG 0.5 PC
     Route: 065
     Dates: start: 20160119
  2. PEMBROLIZUMAB. [Suspect]
     Active Substance: PEMBROLIZUMAB
     Indication: MALIGNANT MELANOMA
     Dosage: 2 MG/KG, Q3W, (TOTAL DAILY DOSE 100MG/CYCLE) (STRENGTH: 50 MG/VIAL)
     Route: 042
     Dates: start: 20151208, end: 20151229
  3. PEMBROLIZUMAB. [Suspect]
     Active Substance: PEMBROLIZUMAB
     Dosage: 2 MG/KG, Q3W (100MG/CYCLE) (STRENGTH: 50MG/VIAL)
     Route: 042
     Dates: start: 20160119, end: 20160119
  4. LEVOTHYROXINE SODIUM. [Concomitant]
     Active Substance: LEVOTHYROXINE SODIUM
     Dosage: 3/4 PC
     Route: 065

REACTIONS (2)
  - Ventricular tachycardia [Fatal]
  - Ventricular tachycardia [Recovered/Resolved]

NARRATIVE: CASE EVENT DATE: 20160214
